FAERS Safety Report 5386595-2 (Version None)
Quarter: 2007Q3

REPORT INFORMATION
  Report Type: 
  Country: None (occurrence: None)
  Receive Date: 20070713
  Receipt Date: 20070612
  Transmission Date: 20080115
  Serious: Yes (Other)
  Sender: FDA-Public Use
  Company Number: B0478882A

PATIENT
  Sex: Female

DRUGS (1)
  1. VENTOLIN [Suspect]
     Indication: ASTHMA
     Route: 055

REACTIONS (4)
  - DEVICE BREAKAGE [None]
  - DEVICE LEAD DAMAGE [None]
  - MOUTH INJURY [None]
  - PHARMACEUTICAL PRODUCT COMPLAINT [None]
